FAERS Safety Report 6040335-2 (Version None)
Quarter: 2009Q1

REPORT INFORMATION
  Report Type: 
  Country: None (occurrence: None)
  Receive Date: 20090116
  Receipt Date: 20080215
  Transmission Date: 20090719
  Serious: No
  Sender: FDA-Public Use
  Company Number: US-BRISTOL-MYERS SQUIBB COMPANY-14079248

PATIENT
  Age: 4 Decade
  Sex: Female

DRUGS (3)
  1. ABILIFY [Suspect]
     Indication: SCHIZOPHRENIA
  2. COGENTIN [Concomitant]
  3. VALIUM [Concomitant]
     Indication: ANXIETY

REACTIONS (2)
  - TREMOR [None]
  - WEIGHT INCREASED [None]
